FAERS Safety Report 16861514 (Version 2)
Quarter: 2019Q4

REPORT INFORMATION
  Report Type: Other
  Country: IT (occurrence: IT)
  Receive Date: 20190927
  Receipt Date: 20191025
  Transmission Date: 20200122
  Serious: Yes (Other)
  Sender: FDA-Public Use
  Company Number: IT-APOTEX-2019AP022536

PATIENT
  Age: 20 Year
  Sex: Male

DRUGS (2)
  1. PAROXETINE. [Suspect]
     Active Substance: PAROXETINE
     Indication: DRUG ABUSE
     Dosage: 40 MG, IN TOTAL
     Route: 048
     Dates: start: 20190623, end: 20190623
  2. RIVOTRIL [Suspect]
     Active Substance: CLONAZEPAM
     Indication: DRUG ABUSE
     Dosage: 20 GTT, IN TOTAL
     Route: 048
     Dates: start: 20190623, end: 20190623

REACTIONS (5)
  - Hypotension [Recovering/Resolving]
  - Syncope [Recovering/Resolving]
  - Drug abuse [Recovering/Resolving]
  - Somnolence [Recovering/Resolving]
  - Dysarthria [Recovering/Resolving]

NARRATIVE: CASE EVENT DATE: 20190623
